FAERS Safety Report 9063386 (Version 3)
Quarter: 2013Q1

REPORT INFORMATION
  Report Type: Spontaneous
  Country: JP (occurrence: JP)
  Receive Date: 20130213
  Receipt Date: 20130314
  Transmission Date: 20140127
  Serious: Yes (Death, Hospitalization)
  Sender: FDA-Public Use
  Company Number: PHHY2013JP007471

PATIENT
  Age: 66 None
  Sex: Male
  Weight: 64 kg

DRUGS (3)
  1. TASIGNA [Suspect]
     Indication: CHRONIC MYELOID LEUKAEMIA
     Dosage: 800 MG, DAILY
  2. SPRYCEL [Suspect]
     Indication: CHRONIC MYELOID LEUKAEMIA
     Dosage: 50 MG, DAILY
     Route: 048
     Dates: start: 20100603, end: 20100616
  3. SPRYCEL [Suspect]
     Dosage: 100 MG, DAILY
     Route: 048
     Dates: start: 20120617, end: 20121010

REACTIONS (25)
  - Pleural effusion [Fatal]
  - Pericardial effusion [Fatal]
  - Abdominal pain [Fatal]
  - Cardiac tamponade [Fatal]
  - Postresuscitation encephalopathy [Fatal]
  - Renal disorder [Fatal]
  - Cardiac arrest [Unknown]
  - Cardiomegaly [Unknown]
  - Respiratory distress [Unknown]
  - Coma scale abnormal [Unknown]
  - Pulseless electrical activity [Unknown]
  - Acidosis [Unknown]
  - C-reactive protein increased [Unknown]
  - Cardiac failure [Unknown]
  - Pericarditis [Unknown]
  - Blood pressure decreased [Unknown]
  - Electrolyte imbalance [Unknown]
  - Abdominal discomfort [Unknown]
  - Abdominal distension [Unknown]
  - Aspartate aminotransferase increased [Unknown]
  - Alanine aminotransferase increased [Unknown]
  - Blood creatinine increased [Unknown]
  - Blood urea increased [Unknown]
  - Oedema [Unknown]
  - Malaise [Unknown]
